FAERS Safety Report 7942077-2 (Version None)
Quarter: 2011Q4

REPORT INFORMATION
  Report Type: 
  Country: None (occurrence: None)
  Receive Date: 20111128
  Receipt Date: 20111118
  Transmission Date: 20120403
  Serious: Yes (Other)
  Sender: FDA-Public Use
  Company Number: US-JNJFOC-20111108665

PATIENT
  Age: 54 Year
  Sex: Male
  Weight: 135.17 kg

DRUGS (4)
  1. MINOXIDIL [Suspect]
     Indication: ANDROGENETIC ALOPECIA
     Dosage: ^TO LINE ON THE DROPPER^
     Route: 061
     Dates: start: 20091101, end: 20110301
  2. WATER PILL NOS [Concomitant]
     Indication: HYPERTENSION
     Route: 065
  3. MINOXIDIL [Suspect]
     Route: 061
  4. LISINOPRIL [Concomitant]
     Indication: HYPERTENSION
     Route: 065

REACTIONS (2)
  - UNDERDOSE [None]
  - CEREBROVASCULAR ACCIDENT [None]
